FAERS Safety Report 19870962 (Version 2)
Quarter: 2025Q2

REPORT INFORMATION
  Report Type: Spontaneous
  Country: IT (occurrence: IT)
  Receive Date: 20210923
  Receipt Date: 20250405
  Transmission Date: 20250716
  Serious: Yes (Other)
  Sender: AUROBINDO
  Company Number: IT-AMGEN-ITASP2021139068

PATIENT
  Age: 69 Year
  Sex: Female

DRUGS (1)
  1. CINACALCET [Suspect]
     Active Substance: CINACALCET
     Indication: Hypercalcaemia
     Route: 065

REACTIONS (1)
  - Hyperparathyroidism primary [Recovered/Resolved]
